FAERS Safety Report 5895619-5 (Version None)
Quarter: 2008Q3

REPORT INFORMATION
  Report Type: 
  Country: None (occurrence: None)
  Receive Date: 20080924
  Receipt Date: 20080605
  Transmission Date: 20090109
  Serious: Yes (Other)
  Sender: FDA-Public Use
  Company Number: US-ASTRAZENECA-2006UW21005

PATIENT
  Age: 13 Year
  Sex: Female
  Weight: 160.6 kg

DRUGS (9)
  1. SEROQUEL [Suspect]
     Indication: BIPOLAR DISORDER
     Route: 048
     Dates: start: 20011029, end: 20030101
  2. SEROQUEL [Suspect]
     Indication: DEPRESSION
     Route: 048
     Dates: start: 20011029, end: 20030101
  3. ABILIFY [Concomitant]
  4. CLOZARIL [Concomitant]
  5. GEODON [Concomitant]
  6. HALDOL [Concomitant]
  7. RISPERDAL [Concomitant]
  8. THORAZINE [Concomitant]
  9. ZYPREXA [Concomitant]

REACTIONS (4)
  - DIABETES MELLITUS [None]
  - HEADACHE [None]
  - NEUROLEPTIC MALIGNANT SYNDROME [None]
  - OBESITY [None]
